FAERS Safety Report 19169249 (Version 4)
Quarter: 2021Q4

REPORT INFORMATION
  Report Type: Spontaneous
  Country: IN (occurrence: IN)
  Receive Date: 20210422
  Receipt Date: 20211119
  Transmission Date: 20220303
  Serious: Yes (Other)
  Sender: FDA-Public Use
  Company Number: IN-PFIZER INC-2021285503

PATIENT
  Age: 62 Year
  Sex: Female

DRUGS (10)
  1. PALBOCICLIB [Suspect]
     Active Substance: PALBOCICLIB
     Indication: Breast cancer metastatic
     Dosage: 125 MG, 1X/DAY
     Route: 048
     Dates: start: 20210227
  2. PALBOCICLIB [Suspect]
     Active Substance: PALBOCICLIB
     Dosage: 75 MG, CYCLIC, 1 TIME A DAY X 21/28 DAY
  3. FULVESTRANT [Concomitant]
     Active Substance: FULVESTRANT
     Dosage: 3RD CYCLE
  4. GABAPENTIN [Concomitant]
     Active Substance: GABAPENTIN
     Dosage: 300 MG
  5. TRAMADOL [Concomitant]
     Active Substance: TRAMADOL
     Dosage: 50 MG
  6. GERBISA [Concomitant]
     Dosage: 5 MG
  7. PAN D [CAMPHOR;GLYCEROL;MENTHOL;ZINC OXIDE] [Concomitant]
  8. VERTIN [BETAHISTINE HYDROCHLORIDE] [Concomitant]
     Dosage: 16 MG
  9. BECOSULES Z [Concomitant]
  10. CREMAFFIN [Concomitant]
     Dosage: 15 ML, 3X/DAY (TDS)

REACTIONS (3)
  - Pancytopenia [Unknown]
  - Platelet count decreased [Unknown]
  - Full blood count abnormal [Unknown]
